FAERS Safety Report 8730537 (Version 2)
Quarter: 2012Q4

REPORT INFORMATION
  Report Type: 
  Country: US (occurrence: US)
  Receive Date: 20120817
  Receipt Date: 20120913
  Transmission Date: 20130627
  Serious: No
  Sender: FDA-Public Use
  Company Number: US-ASTRAZENECA-2012SE49808

PATIENT
  Age: 72 Year
  Sex: Female
  Weight: 63.5 kg

DRUGS (5)
  1. SEROQUEL [Suspect]
     Indication: BIPOLAR DISORDER
     Route: 048
  2. SEROQUEL [Suspect]
     Indication: BIPOLAR DISORDER
     Route: 048
     Dates: start: 2010, end: 20120531
  3. SEROQUEL [Suspect]
     Indication: BIPOLAR DISORDER
     Dosage: GENERIC FORM, 400 MG HS
     Route: 048
     Dates: start: 20120601, end: 20120602
  4. SEROQUEL [Suspect]
     Indication: BIPOLAR DISORDER
     Route: 048
     Dates: start: 20120603
  5. ALPRAZOLAM [Concomitant]
     Indication: PANIC ATTACK
     Route: 048

REACTIONS (4)
  - Malaise [Unknown]
  - Adverse drug reaction [Unknown]
  - Nausea [Recovered/Resolved]
  - Sluggishness [Recovered/Resolved]
